FAERS Safety Report 7347609-3 (Version None)
Quarter: 2011Q1

REPORT INFORMATION
  Report Type: 
  Country: None (occurrence: None)
  Receive Date: 20110311
  Receipt Date: 20110302
  Transmission Date: 20110831
  Serious: Yes (Hospitalization)
  Sender: FDA-Public Use
  Company Number: JP-EISAI INC-E3810-02607-SPO-JP

PATIENT
  Sex: Male

DRUGS (14)
  1. PARIET (RABEPRAZOLE) [Suspect]
     Indication: GASTRIC ULCER HAEMORRHAGE
     Route: 048
     Dates: start: 20070523, end: 20090119
  2. ALLOPURINOL [Concomitant]
     Indication: HYPERURICAEMIA
     Route: 048
     Dates: start: 20070424
  3. PARIET (RABEPRAZOLE) [Suspect]
     Route: 048
     Dates: start: 20070408, end: 20070522
  4. ARTIST [Concomitant]
     Route: 048
     Dates: start: 20070916, end: 20080206
  5. ADALAT CC [Concomitant]
     Indication: HYPERTENSION
     Route: 048
     Dates: start: 20080311
  6. PANALDINE [Concomitant]
     Indication: ANGINA PECTORIS
     Route: 048
     Dates: start: 20070410
  7. ASPIRIN [Concomitant]
     Indication: ANGINA PECTORIS
     Route: 048
     Dates: start: 20070410
  8. SIGMART [Concomitant]
     Indication: ANGINA PECTORIS
     Route: 048
     Dates: start: 20070416
  9. ADALAT CC [Concomitant]
     Route: 048
     Dates: start: 20070411, end: 20080310
  10. AMOBAN [Concomitant]
     Indication: INSOMNIA
     Route: 048
     Dates: start: 20080603
  11. ARTIST [Concomitant]
     Indication: HYPERTENSION
     Route: 048
     Dates: start: 20080212
  12. NAFTOPIDIL [Concomitant]
     Route: 048
     Dates: start: 20070927
  13. OLMESARTAN [Concomitant]
     Indication: HYPERTENSION
     Route: 048
     Dates: start: 20070926
  14. CONIEL [Concomitant]
     Indication: HYPERTENSION
     Route: 048
     Dates: start: 20070425

REACTIONS (4)
  - GASTROINTESTINAL DISORDER [None]
  - DIARRHOEA [None]
  - COLITIS COLLAGENOUS [None]
  - CARDIOVASCULAR DISORDER [None]
